FAERS Safety Report 15262575 (Version 1)
Quarter: 2018Q3

REPORT INFORMATION
  Report Type: Spontaneous
  Country: US (occurrence: US)
  Receive Date: 20180720
  Receipt Date: 20180720
  Transmission Date: 20181010
  Serious: Yes (Hospitalization)
  Sender: FDA-Public Use
  Company Number: None

PATIENT
  Age: 57 Year
  Sex: Female

DRUGS (4)
  1. PANTOPRAZOLE [Concomitant]
     Active Substance: PANTOPRAZOLE
  2. TACROLIMUS CAP 1MG [Suspect]
     Active Substance: TACROLIMUS
  3. COREG [Concomitant]
     Active Substance: CARVEDILOL
  4. CLONIDINE. [Suspect]
     Active Substance: CLONIDINE

REACTIONS (1)
  - Urinary tract infection [None]

NARRATIVE: CASE EVENT DATE: 20180620
